FAERS Safety Report 4377703-0 (Version None)
Quarter: 2004Q2

REPORT INFORMATION
  Report Type: 
  Country: None (occurrence: None)
  Receive Date: 20040615
  Receipt Date: 20040519
  Transmission Date: 20050107
  Serious: Yes (Hospitalization)
  Sender: FDA-Public Use
  Company Number: PHBS2004JP06729

PATIENT
  Age: 60 Year
  Sex: Female

DRUGS (2)
  1. VOLTAREN [Suspect]
     Indication: ANALGESIC EFFECT
     Dosage: 25 MG/DAY
     Route: 048
     Dates: start: 20040517, end: 20040517
  2. KEFRAL [Concomitant]
     Dosage: 250 MG/DAY
     Route: 048
     Dates: start: 20040517, end: 20040517

REACTIONS (7)
  - BLOOD PRESSURE DECREASED [None]
  - BODY TEMPERATURE DECREASED [None]
  - FEELING ABNORMAL [None]
  - FLUSHING [None]
  - LOSS OF CONSCIOUSNESS [None]
  - PRURITUS [None]
  - SHOCK [None]
